FAERS Safety Report 9753410 (Version 2)
Quarter: 2014Q1

REPORT INFORMATION
  Report Type: Spontaneous
  Country: IT (occurrence: IT)
  Receive Date: 20131213
  Receipt Date: 20140210
  Transmission Date: 20141002
  Serious: Yes (Other)
  Sender: FDA-Public Use
  Company Number: IT-SA-2013SA126495

PATIENT
  Age: 79 Year
  Sex: Male

DRUGS (2)
  1. PLAVIX [Suspect]
     Indication: CARDIOVASCULAR EVENT PROPHYLAXIS
     Route: 048
     Dates: start: 20121206, end: 20131025
  2. CARDIOASPIRIN [Concomitant]
     Route: 048
     Dates: start: 20121206, end: 20131202

REACTIONS (2)
  - Dyspnoea [Recovering/Resolving]
  - Fibrin D dimer increased [Recovering/Resolving]
